FAERS Safety Report 4862343-7 (Version None)
Quarter: 2005Q4

REPORT INFORMATION
  Report Type: 
  Country: None (occurrence: None)
  Receive Date: 20051221
  Receipt Date: 20051209
  Transmission Date: 20060501
  Serious: Yes (Other)
  Sender: FDA-Public Use
  Company Number: CA-BRISTOL-MYERS SQUIBB COMPANY-13218201

PATIENT
  Age: 76 Year
  Sex: Male

DRUGS (15)
  1. TEQUIN [Suspect]
  2. BENYLIN D [Concomitant]
  3. COREG [Concomitant]
     Route: 048
  4. CORTEF [Concomitant]
     Route: 048
  5. DIAMICRON [Concomitant]
     Route: 048
  6. FUROSEMIDE [Concomitant]
     Route: 048
  7. GLUCOPHAGE [Concomitant]
     Route: 048
  8. LIPITOR [Concomitant]
     Route: 048
  9. NOVASEN [Concomitant]
  10. PANTOPRAZOLE SODIUM [Concomitant]
     Route: 048
  11. QUININE [Concomitant]
     Route: 048
  12. RAMIPRIL [Concomitant]
     Route: 048
  13. SERAX [Concomitant]
     Route: 048
  14. SYNTHROID [Concomitant]
     Route: 048
  15. ZYLOPRIM [Concomitant]
     Route: 048

REACTIONS (5)
  - FATIGUE [None]
  - HYPERGLYCAEMIA [None]
  - POLYDIPSIA [None]
  - POLYURIA [None]
  - VISUAL DISTURBANCE [None]
